FAERS Safety Report 7170222-8 (Version None)
Quarter: 2010Q4

REPORT INFORMATION
  Report Type: 
  Country: None (occurrence: None)
  Receive Date: 20101214
  Receipt Date: 20101214
  Transmission Date: 20110411
  Serious: Yes (Other)
  Sender: FDA-Public Use
  Company Number: None

PATIENT
  Age: 81 Year
  Sex: Male
  Weight: 77.1115 kg

DRUGS (1)
  1. PRADAXA [Suspect]
     Indication: DRUG THERAPY CHANGED
     Dosage: 150 MG 1 CAPSULE DAILY

REACTIONS (4)
  - HYPERSENSITIVITY [None]
  - MUSCULOSKELETAL DISORDER [None]
  - SYNCOPE [None]
  - URTICARIA [None]
